FAERS Safety Report 5226203-4 (Version None)
Quarter: 2007Q1

REPORT INFORMATION
  Report Type: 
  Country: None (occurrence: None)
  Receive Date: 20070201
  Receipt Date: 20070122
  Transmission Date: 20070707
  Serious: Yes (Other)
  Sender: FDA-Public Use
  Company Number: RO-ROCHE-479548

PATIENT
  Age: 70 Year
  Sex: Female

DRUGS (4)
  1. BONVIVA [Suspect]
     Indication: OSTEOPOROSIS
     Route: 065
     Dates: start: 20060601, end: 20061115
  2. BONVIVA [Suspect]
     Route: 065
     Dates: start: 20061201, end: 20061201
  3. ENAP [Concomitant]
  4. TERTENSIF [Concomitant]
     Dosage: GENERIC REPORTED AS INDAPAMIDUM.

REACTIONS (2)
  - BONE PAIN [None]
  - GENERAL PHYSICAL HEALTH DETERIORATION [None]
